FAERS Safety Report 6340112-9 (Version None)
Quarter: 2009Q3

REPORT INFORMATION
  Report Type: 
  Country: None (occurrence: None)
  Receive Date: 20090902
  Receipt Date: 20090825
  Transmission Date: 20100115
  Serious: No
  Sender: FDA-Public Use
  Company Number: 2009009941

PATIENT
  Sex: Female

DRUGS (2)
  1. FENTORA [Suspect]
     Indication: BACK PAIN
     Dosage: BU
     Route: 002
  2. FENTORA [Suspect]
     Indication: MIGRAINE
     Dosage: BU
     Route: 002

REACTIONS (3)
  - CONTRAINDICATION TO MEDICAL TREATMENT [None]
  - DRUG PRESCRIBING ERROR [None]
  - MEDICATION ERROR [None]
